FAERS Safety Report 9014648 (Version 2)
Quarter: 2013Q2

REPORT INFORMATION
  Report Type: Spontaneous
  Country: GR (occurrence: GR)
  Receive Date: 20130115
  Receipt Date: 20130408
  Transmission Date: 20140414
  Serious: Yes (Death, Hospitalization)
  Sender: FDA-Public Use
  Company Number: GR-ABBOTT-13P-066-1035164-00

PATIENT
  Age: 84 Year
  Sex: Male
  Weight: 82.7 kg

DRUGS (12)
  1. ZEMPLAR [Suspect]
     Indication: HYPERPARATHYROIDISM SECONDARY
     Route: 042
     Dates: start: 20111130, end: 20121228
  2. ARANESP [Concomitant]
     Indication: PRODUCT USED FOR UNKNOWN INDICATION
  3. VENOFER [Concomitant]
     Indication: PRODUCT USED FOR UNKNOWN INDICATION
  4. SINTROM [Concomitant]
     Indication: PRODUCT USED FOR UNKNOWN INDICATION
  5. FILICINE [Concomitant]
     Indication: PRODUCT USED FOR UNKNOWN INDICATION
  6. LOSEC [Concomitant]
     Indication: GASTRITIS
  7. LOFTYL [Concomitant]
     Indication: PRODUCT USED FOR UNKNOWN INDICATION
  8. ALUCAP( ALUMINUM HYDROXIDE) [Concomitant]
     Indication: PRODUCT USED FOR UNKNOWN INDICATION
  9. SEROPRAM [Concomitant]
     Indication: PRODUCT USED FOR UNKNOWN INDICATION
  10. T4 [Concomitant]
     Indication: PRODUCT USED FOR UNKNOWN INDICATION
  11. SUPERAMIN [Concomitant]
     Indication: PRODUCT USED FOR UNKNOWN INDICATION
     Dosage: DURING HEMODIALYSIS
  12. NEUROBION [Concomitant]
     Indication: PRODUCT USED FOR UNKNOWN INDICATION
     Dosage: DURING HEMODIALYSIS

REACTIONS (3)
  - Cardiac arrest [Fatal]
  - Gastric haemorrhage [Fatal]
  - Renal failure chronic [Fatal]
